FAERS Safety Report 19918003 (Version 2)
Quarter: 2022Q1

REPORT INFORMATION
  Report Type: Other
  Country: CN (occurrence: None)
  Receive Date: 20211005
  Receipt Date: 20220211
  Transmission Date: 20220423
  Serious: Yes (Other)
  Sender: FDA-Public Use
  Company Number: CN-ROCHE-2924552

PATIENT

DRUGS (10)
  1. VEMURAFENIB [Suspect]
     Active Substance: VEMURAFENIB
     Indication: Colorectal cancer
     Route: 048
  2. VEMURAFENIB [Suspect]
     Active Substance: VEMURAFENIB
     Indication: BRAF V600E mutation positive
  3. CETUXIMAB [Suspect]
     Active Substance: CETUXIMAB
     Indication: Colorectal cancer
     Route: 042
  4. CETUXIMAB [Suspect]
     Active Substance: CETUXIMAB
     Indication: BRAF V600E mutation positive
  5. IRINOTECAN [Suspect]
     Active Substance: IRINOTECAN
     Indication: Colorectal cancer
     Dosage: INFUSION OVER 2 HOURS
     Route: 041
  6. IRINOTECAN [Suspect]
     Active Substance: IRINOTECAN
     Indication: BRAF V600E mutation positive
  7. LEUCOVORIN [Suspect]
     Active Substance: LEUCOVORIN
     Indication: Colorectal cancer
     Route: 041
  8. LEUCOVORIN [Suspect]
     Active Substance: LEUCOVORIN
     Indication: BRAF V600E mutation positive
  9. FLUOROURACIL [Suspect]
     Active Substance: FLUOROURACIL
     Indication: Colorectal cancer
     Dosage: ON DAY 1 IVGTT
     Route: 041
  10. FLUOROURACIL [Suspect]
     Active Substance: FLUOROURACIL
     Indication: BRAF V600E mutation positive
     Dosage: 46-H CONTINUOUS INFUSION
     Route: 041

REACTIONS (13)
  - Neutropenia [Unknown]
  - Rash [Unknown]
  - Anaemia [Unknown]
  - Fatigue [Unknown]
  - Diarrhoea [Unknown]
  - Leukopenia [Unknown]
  - Hyperbilirubinaemia [Unknown]
  - Alanine aminotransferase increased [Unknown]
  - Arthralgia [Unknown]
  - Myalgia [Unknown]
  - Pneumonia [Unknown]
  - Intestinal obstruction [Unknown]
  - Aspartate aminotransferase increased [Unknown]
